FAERS Safety Report 20706871 (Version 2)
Quarter: 2022Q2

REPORT INFORMATION
  Report Type: Spontaneous
  Country: US (occurrence: US)
  Receive Date: 20220413
  Receipt Date: 20220415
  Transmission Date: 20220721
  Serious: Yes (Other)
  Sender: FDA-Public Use
  Company Number: US-SA-SAC20220412001641

PATIENT
  Age: 19 Year
  Sex: Female

DRUGS (1)
  1. ZANTAC [Suspect]
     Active Substance: RANITIDINE HYDROCHLORIDE
     Indication: Dyspepsia
     Dosage: 150 MG
     Dates: start: 198501, end: 201501

REACTIONS (4)
  - Skin cancer [Unknown]
  - Cervix carcinoma [Recovered/Resolved]
  - Tongue neoplasm [Unknown]
  - Renal cancer stage II [Unknown]

NARRATIVE: CASE EVENT DATE: 19860101
